FAERS Safety Report 15148175 (Version 1)
Quarter: 2018Q3

REPORT INFORMATION
  Report Type: Spontaneous
  Country: US (occurrence: US)
  Receive Date: 20180619
  Receipt Date: 20180619
  Transmission Date: 20181010
  Serious: No
  Sender: FDA-Public Use
  Company Number: None

PATIENT
  Age: 42 Year
  Sex: Female

DRUGS (1)
  1. LUPRON DEPOT [Suspect]
     Active Substance: LEUPROLIDE ACETATE
     Indication: ADENOMYOSIS
     Route: 030
     Dates: start: 20171130

REACTIONS (15)
  - Dizziness [None]
  - Arthralgia [None]
  - Back pain [None]
  - Nausea [None]
  - Vomiting [None]
  - Pain in extremity [None]
  - Musculoskeletal pain [None]
  - Hair growth abnormal [None]
  - Acne [None]
  - Musculoskeletal stiffness [None]
  - Facial pain [None]
  - Myalgia [None]
  - Diarrhoea [None]
  - Alopecia [None]
  - Agitation [None]

NARRATIVE: CASE EVENT DATE: 20171130
